FAERS Safety Report 24181438 (Version 1)
Quarter: 2024Q3

REPORT INFORMATION
  Report Type: Spontaneous
  Country: FR (occurrence: FR)
  Receive Date: 20240807
  Receipt Date: 20240807
  Transmission Date: 20241016
  Serious: Yes (Other)
  Sender: TAKEDA
  Company Number: None

PATIENT
  Age: 87 Year
  Sex: Female

DRUGS (2)
  1. ANAGRELIDE HYDROCHLORIDE [Suspect]
     Active Substance: ANAGRELIDE HYDROCHLORIDE
     Indication: Essential thrombocythaemia
     Dosage: UNK
     Route: 048
     Dates: start: 20130218, end: 20240214
  2. HYDREASYN [Concomitant]
     Indication: Essential thrombocythaemia
     Dosage: UNK
     Route: 048
     Dates: start: 202402

REACTIONS (3)
  - Dyspnoea [Not Recovered/Not Resolved]
  - Pulmonary arterial hypertension [Not Recovered/Not Resolved]
  - Condition aggravated [Not Recovered/Not Resolved]

NARRATIVE: CASE EVENT DATE: 20210101
